FAERS Safety Report 5526354-0 (Version None)
Quarter: 2007Q4

REPORT INFORMATION
  Report Type: 
  Country: None (occurrence: None)
  Receive Date: 20071127
  Receipt Date: 20071116
  Transmission Date: 20080405
  Serious: Yes (Hospitalization)
  Sender: FDA-Public Use
  Company Number: BR-ELI_LILLY_AND_COMPANY-BR200711004623

PATIENT
  Age: 41 Year
  Sex: Male

DRUGS (2)
  1. OLANZAPINE [Suspect]
     Indication: SCHIZOPHRENIA
     Dosage: 5 MG, DAILY (1/D)
     Route: 065
  2. OLANZAPINE [Suspect]
     Dosage: 30 MG, DAILY (1/D)
     Route: 065

REACTIONS (7)
  - ABNORMAL BEHAVIOUR [None]
  - EUPHORIC MOOD [None]
  - HYPOMANIA [None]
  - INSOMNIA [None]
  - OVERDOSE [None]
  - PRESSURE OF SPEECH [None]
  - PSYCHOTIC DISORDER [None]
